FAERS Safety Report 17896151 (Version 1)
Quarter: 2020Q2

REPORT INFORMATION
  Report Type: Spontaneous
  Country: US (occurrence: US)
  Receive Date: 20200612
  Receipt Date: 20200612
  Transmission Date: 20200714
  Serious: Yes (Hospitalization)
  Sender: FDA-Public Use
  Company Number: None

PATIENT
  Age: 74 Year
  Sex: Female
  Weight: 81.9 kg

DRUGS (4)
  1. FLUDARABINE [Suspect]
     Active Substance: FLUDARABINE PHOSPHATE
  2. TOCLIZUMAB [Concomitant]
     Dates: start: 20200525
  3. YESCARTA [Suspect]
     Active Substance: AXICABTAGENE CILOLEUCEL
     Dates: start: 20200515
  4. CYCLOPHOSPHAMIDE. [Suspect]
     Active Substance: CYCLOPHOSPHAMIDE

REACTIONS (12)
  - Malaise [None]
  - Oxygen saturation decreased [None]
  - Dyspnoea [None]
  - Cardiorenal syndrome [None]
  - Hypotension [None]
  - Aphasia [None]
  - Serum ferritin increased [None]
  - Memory impairment [None]
  - Neurotoxicity [None]
  - Pyrexia [None]
  - C-reactive protein increased [None]
  - Fatigue [None]

NARRATIVE: CASE EVENT DATE: 20200522
